FAERS Safety Report 13177303 (Version 1)
Quarter: 2017Q1

REPORT INFORMATION
  Report Type: Report from Study
  Country: US (occurrence: US)
  Receive Date: 20170201
  Receipt Date: 20170201
  Transmission Date: 20170428
  Serious: Yes (Other)
  Sender: FDA-Public Use
  Company Number: US-EXELIXIS-CABO-14004746

PATIENT
  Age: 74 Year
  Sex: Male

DRUGS (9)
  1. COMETRIQ [Suspect]
     Active Substance: CABOZANTINIB S-MALATE
     Dosage: 40 MG, QD
     Route: 048
     Dates: start: 20150205, end: 20150310
  2. THYROXIN [Concomitant]
     Active Substance: LEVOTHYROXINE
  3. COMETRIQ [Suspect]
     Active Substance: CABOZANTINIB S-MALATE
     Indication: RENAL CANCER
     Dosage: 60 MG, QD
     Route: 048
     Dates: start: 20140824, end: 20150204
  4. MAGNESIUM OXIDE. [Concomitant]
     Active Substance: MAGNESIUM OXIDE
  5. COMETRIQ [Suspect]
     Active Substance: CABOZANTINIB S-MALATE
     Dosage: 60 MG, QD
     Route: 048
     Dates: start: 20150311, end: 201601
  6. LABETALOL [Concomitant]
     Active Substance: LABETALOL\LABETALOL HYDROCHLORIDE
  7. LOMOTIL [Concomitant]
     Active Substance: ATROPINE SULFATE\DIPHENOXYLATE HYDROCHLORIDE
     Dosage: UNK
     Dates: start: 201509
  8. IMODIUM AD [Concomitant]
     Active Substance: LOPERAMIDE HYDROCHLORIDE
     Dosage: UNK
     Dates: start: 201509
  9. SYNTHROID [Concomitant]
     Active Substance: LEVOTHYROXINE SODIUM

REACTIONS (14)
  - Musculoskeletal disorder [Unknown]
  - Blood creatinine increased [Unknown]
  - Diarrhoea [Not Recovered/Not Resolved]
  - Rectal haemorrhage [Unknown]
  - Metastases to stomach [Unknown]
  - Oral herpes [Unknown]
  - Swelling [Unknown]
  - Fasciitis [Unknown]
  - Pharyngeal disorder [Unknown]
  - Hypertension [Unknown]
  - Platelet count decreased [Unknown]
  - Off label use [Unknown]
  - Muscle spasms [Unknown]
  - Neuropathy peripheral [Unknown]

NARRATIVE: CASE EVENT DATE: 2014
